FAERS Safety Report 10482925 (Version 1)
Quarter: 2014Q3

REPORT INFORMATION
  Report Type: Report from Study
  Country: US (occurrence: US)
  Receive Date: 20140929
  Receipt Date: 20140929
  Transmission Date: 20150326
  Serious: No
  Sender: FDA-Public Use
  Company Number: US-ALEXION-A201102502

PATIENT
  Sex: Female

DRUGS (1)
  1. SOLIRIS [Suspect]
     Active Substance: ECULIZUMAB
     Indication: PAROXYSMAL NOCTURNAL HAEMOGLOBINURIA
     Dosage: UNK
     Route: 042

REACTIONS (6)
  - Malaise [Unknown]
  - Dyspnoea [Recovering/Resolving]
  - Visual acuity reduced [Unknown]
  - Swelling [Not Recovered/Not Resolved]
  - Fluid replacement [Unknown]
  - Transfusion [Unknown]
